FAERS Safety Report 25275524 (Version 2)
Quarter: 2025Q2

REPORT INFORMATION
  Report Type: Spontaneous
  Country: US (occurrence: US)
  Receive Date: 20250506
  Receipt Date: 20250515
  Transmission Date: 20250716
  Serious: Yes (Death, Other)
  Sender: MALLINCKRODT
  Company Number: US-MALLINCKRODT-MNK202502423

PATIENT
  Age: 42 Year
  Sex: Male

DRUGS (1)
  1. TERLIPRESSIN [Suspect]
     Active Substance: TERLIPRESSIN
     Indication: Hepatorenal syndrome
     Route: 042
     Dates: start: 20250417, end: 20250419

REACTIONS (2)
  - Oesophageal ulcer haemorrhage [Fatal]
  - Shock [Unknown]

NARRATIVE: CASE EVENT DATE: 20250401
